FAERS Safety Report 9234364 (Version 1)
Quarter: 2013Q2

REPORT INFORMATION
  Report Type: Spontaneous
  Country: US (occurrence: US)
  Receive Date: 20130415
  Receipt Date: 20130415
  Transmission Date: 20140414
  Serious: Yes (Other)
  Sender: FDA-Public Use
  Company Number: US-RB-052325-13

PATIENT
  Age: 28 Year
  Sex: Female

DRUGS (3)
  1. MAXIMUM STRENGTH MUCINEX SINUS-MAX DAY/NIGHT CAPLETS (NIGHT CAPLET) [Suspect]
     Indication: PRODUCT USED FOR UNKNOWN INDICATION
     Dates: start: 20130401
  2. MAXIMUM STRENGTH MUCINEX SINUS-MAX DAY/NIGHT CAPLETS (NIGHT CAPLET) [Suspect]
  3. MAXIMUM STRENGTH MUCINEX SINUS-MAX DAY/NIGHT CAPLETS (NIGHT CAPLET) [Suspect]

REACTIONS (4)
  - Amnesia [Recovered/Resolved]
  - Feeling abnormal [Recovered/Resolved]
  - Unevaluable event [Recovered/Resolved]
  - Somnolence [Recovered/Resolved]
